FAERS Safety Report 8924829 (Version 2)
Quarter: 2012Q4

REPORT INFORMATION
  Report Type: 
  Country: US (occurrence: US)
  Receive Date: 20121126
  Receipt Date: 20121226
  Transmission Date: 20130627
  Serious: Yes (Hospitalization)
  Sender: FDA-Public Use
  Company Number: US-ELI_LILLY_AND_COMPANY-US201211004785

PATIENT
  Sex: Female

DRUGS (1)
  1. ADCIRCA [Suspect]
     Indication: PULMONARY ARTERIAL HYPERTENSION
     Dosage: 40 mg, qd
     Dates: start: 20120921

REACTIONS (4)
  - Pulmonary embolism [Unknown]
  - Asthma [Unknown]
  - Blood glucose decreased [Unknown]
  - Malaise [Unknown]
